FAERS Safety Report 12838686 (Version 1)
Quarter: 2016Q4

REPORT INFORMATION
  Report Type: Spontaneous
  Country: SE (occurrence: SE)
  Receive Date: 20161012
  Receipt Date: 20161012
  Transmission Date: 20170207
  Serious: Yes (Other)
  Sender: FDA-Public Use
  Company Number: SE-009507513-1610SWE003792

PATIENT
  Age: 54 Year
  Sex: Female

DRUGS (9)
  1. FELODIPINE. [Suspect]
     Active Substance: FELODIPINE
  2. ALLEGRA [Suspect]
     Active Substance: FEXOFENADINE HYDROCHLORIDE
  3. SIMVASTATIN TEVA [Suspect]
     Active Substance: SIMVASTATIN
  4. AMLODIPINE [Suspect]
     Active Substance: AMLODIPINE BESYLATE
  5. HYDROCHLOROTHIAZIDE. [Suspect]
     Active Substance: HYDROCHLOROTHIAZIDE
     Route: 048
  6. ENALAPRIL KRKA [Suspect]
     Active Substance: ENALAPRIL MALEATE
  7. METOPROLOL. [Suspect]
     Active Substance: METOPROLOL
  8. LOSARTAN POTASSIUM. [Suspect]
     Active Substance: LOSARTAN POTASSIUM
     Route: 048
  9. OMEPRAZOLE. [Suspect]
     Active Substance: OMEPRAZOLE

REACTIONS (10)
  - Sleep disorder [Unknown]
  - Oropharyngeal pain [Unknown]
  - Dry eye [Unknown]
  - Chest discomfort [Unknown]
  - Peripheral swelling [Unknown]
  - Arthralgia [Unknown]
  - Back pain [Unknown]
  - Pharyngeal oedema [Unknown]
  - Chest pain [Unknown]
  - Fatigue [Unknown]
